FAERS Safety Report 15430111 (Version 1)
Quarter: 2018Q3

REPORT INFORMATION
  Report Type: Spontaneous
  Country: GB (occurrence: GB)
  Receive Date: 20180926
  Receipt Date: 20180926
  Transmission Date: 20181010
  Serious: Yes (Other)
  Sender: FDA-Public Use
  Company Number: GB-IPSEN BIOPHARMACEUTICALS, INC.-2018-12748

PATIENT
  Age: 58 Year
  Sex: Female

DRUGS (6)
  1. LANREOTIDE AUTOGEL [Suspect]
     Active Substance: LANREOTIDE
     Indication: CARCINOID SYNDROME
     Dosage: 120 MG
     Route: 058
     Dates: start: 201302
  2. LX1606 [Concomitant]
     Route: 048
     Dates: start: 20150618, end: 20160224
  3. LX1606 [Concomitant]
     Dosage: NOT REPORTED
     Dates: start: 20150324, end: 20150617
  4. SALBUTAMOL [Concomitant]
     Active Substance: ALBUTEROL
     Indication: DYSPNOEA
     Dosage: 2 PUFFS
     Route: 055
     Dates: start: 1976
  5. LX1606 [Concomitant]
     Indication: CARCINOID SYNDROME
     Route: 048
     Dates: start: 20160224, end: 20161107
  6. BECOTIDE [Concomitant]
     Active Substance: BECLOMETHASONE DIPROPIONATE
     Indication: ASTHMA
     Dosage: 2 PUFFS
     Route: 055

REACTIONS (11)
  - Depression [Unknown]
  - Dyspepsia [Unknown]
  - Aortic valve stenosis [Unknown]
  - Aortic dilatation [Unknown]
  - Tricuspid valve incompetence [Unknown]
  - Tricuspid valve thickening [Unknown]
  - Aortic valve thickening [Unknown]
  - Chronic myeloid leukaemia [Recovering/Resolving]
  - Aortic valve incompetence [Unknown]
  - Hypertension [Unknown]
  - Seasonal allergy [Unknown]

NARRATIVE: CASE EVENT DATE: 2013
